FAERS Safety Report 14146130 (Version 1)
Quarter: 2017Q4

REPORT INFORMATION
  Report Type: Spontaneous
  Country: GB (occurrence: GB)
  Receive Date: 20171031
  Receipt Date: 20171031
  Transmission Date: 20180321
  Serious: Yes (Hospitalization)
  Sender: FDA-Public Use
  Company Number: GB-TEVA-821022ACC

PATIENT
  Age: 72 Year
  Sex: Male

DRUGS (1)
  1. CISPLATINUM [Suspect]
     Active Substance: CISPLATIN

REACTIONS (6)
  - Neutrophilia [Unknown]
  - Liver function test abnormal [Recovered/Resolved with Sequelae]
  - Fatigue [Unknown]
  - Hyponatraemia [Unknown]
  - Acute kidney injury [Recovered/Resolved with Sequelae]
  - Hypochloraemia [Unknown]
